FAERS Safety Report 23345554 (Version 1)
Quarter: 2023Q4

REPORT INFORMATION
  Report Type: Spontaneous
  Country: BG (occurrence: BG)
  Receive Date: 20231228
  Receipt Date: 20231228
  Transmission Date: 20240109
  Serious: Yes (Hospitalization)
  Sender: FDA-Public Use
  Company Number: BG-TEVA-VS-3136360

PATIENT
  Age: 46 Year

DRUGS (3)
  1. METFORMIN [Suspect]
     Active Substance: METFORMIN HYDROCHLORIDE
     Indication: Type 2 diabetes mellitus
     Dosage: 3X1000MG
     Route: 065
  2. SAXENDA [Suspect]
     Active Substance: LIRAGLUTIDE
     Indication: Type 2 diabetes mellitus
     Route: 058
  3. RAMIPRIL [Concomitant]
     Active Substance: RAMIPRIL
     Indication: Type 2 diabetes mellitus
     Route: 065

REACTIONS (13)
  - Acute kidney injury [Recovering/Resolving]
  - Azotaemia [Recovering/Resolving]
  - Dehydration [Recovering/Resolving]
  - Hyperuricaemia [Recovering/Resolving]
  - Haemoconcentration [Recovering/Resolving]
  - Respiratory alkalosis [Recovering/Resolving]
  - Depressed mood [Recovering/Resolving]
  - Hyperhidrosis [Recovering/Resolving]
  - Vomiting [Recovering/Resolving]
  - Hypokalaemia [Recovering/Resolving]
  - Ketonuria [Recovering/Resolving]
  - Asthenia [Recovering/Resolving]
  - Blood glucose increased [Recovering/Resolving]
